FAERS Safety Report 8016767-X (Version None)
Quarter: 2012Q1

REPORT INFORMATION
  Report Type: 
  Country: None (occurrence: None)
  Receive Date: 20120102
  Receipt Date: 20111223
  Transmission Date: 20120608
  Serious: Yes (Other)
  Sender: FDA-Public Use
  Company Number: US-PAR PHARMACEUTICAL, INC-2011SCPR003891

PATIENT

DRUGS (2)
  1. TARCEVA [Concomitant]
     Indication: LUNG NEOPLASM MALIGNANT
     Dosage: UNK, UNKNOWN
     Route: 065
  2. MEGACE ES [Suspect]
     Indication: DECREASED APPETITE
     Dosage: ONE TEASPOONFUL DAILY, 2 HOURS  AFTER DINNER
     Route: 048
     Dates: start: 20111213, end: 20111216

REACTIONS (1)
  - UVULITIS [None]
